FAERS Safety Report 7906218-5 (Version None)
Quarter: 2011Q4

REPORT INFORMATION
  Report Type: 
  Country: None (occurrence: None)
  Receive Date: 20111110
  Receipt Date: 20111102
  Transmission Date: 20120403
  Serious: Yes (Hospitalization)
  Sender: FDA-Public Use
  Company Number: US-ASTELLAS-2011US007265

PATIENT
  Sex: Male
  Weight: 62 kg

DRUGS (7)
  1. LIPITOR [Concomitant]
     Indication: BLOOD CHOLESTEROL
     Dosage: 20 MG, UID/QD
     Route: 048
  2. MYCOPHENOLATE MOFETIL (CELLCEPT) [Concomitant]
     Indication: RENAL TRANSPLANT
     Dosage: 500 MG, BID
     Route: 048
  3. FLUCONAZOLE [Concomitant]
     Indication: INFECTION
     Dosage: 100 MG, UID/QD
     Route: 048
  4. PROTONIX [Concomitant]
     Indication: GASTROOESOPHAGEAL REFLUX DISEASE
     Dosage: 40 MG, UID/QD
     Route: 048
  5. HUMALOG [Concomitant]
     Indication: DIABETES MELLITUS
     Dosage: 8 U, TID
     Route: 050
  6. PROGRAF [Suspect]
     Indication: RENAL TRANSPLANT
     Dosage: 1 MG, BID
     Route: 048
     Dates: start: 20100907
  7. LANCUS [Concomitant]
     Indication: DYSPEPSIA
     Dosage: 25 MG, UID/QD
     Route: 048

REACTIONS (3)
  - SKIN ULCER [None]
  - BONE DISORDER [None]
  - IMPAIRED HEALING [None]
